FAERS Safety Report 10255031 (Version 1)
Quarter: 2014Q2

REPORT INFORMATION
  Report Type: Spontaneous
  Country: GB (occurrence: GB)
  Receive Date: 20140624
  Receipt Date: 20140624
  Transmission Date: 20141212
  Serious: Yes (Hospitalization)
  Sender: FDA-Public Use
  Company Number: PHHY2014GB072792

PATIENT
  Age: 63 Year
  Sex: Male

DRUGS (14)
  1. RAMIPRIL [Suspect]
     Indication: HYPERTENSION
     Dosage: 5 MG, QD
     Dates: start: 201211, end: 201310
  2. RAMIPRIL [Suspect]
     Dosage: 10 MG, QD
     Dates: start: 201310, end: 201404
  3. RAMIPRIL [Suspect]
     Dosage: 10 MG, QD
     Dates: start: 201404
  4. ASPIRIN [Concomitant]
     Dosage: 75 MG, QD
  5. ATENOLOL [Concomitant]
     Dosage: 50 MG, BID
  6. ATORVASTATIN [Concomitant]
     Dosage: 40 MG, UNK
  7. DUROMINE [Concomitant]
     Indication: DIABETES MELLITUS
  8. GABAPENTIN [Concomitant]
     Indication: NEUROPATHY PERIPHERAL
  9. INDAPAMIDE [Concomitant]
     Indication: HYPERTENSION
     Dosage: 2.5 MG, UNK
  10. ISOTARD XL [Concomitant]
  11. LANSOPRAZOLE [Concomitant]
     Dosage: 15 MG, QD
  12. MAXITRAM SR [Concomitant]
     Indication: PAIN
     Dosage: 100 MG, BID
  13. NAPROXEN [Concomitant]
  14. PREGABALIN [Concomitant]
     Indication: NEUROPATHY PERIPHERAL

REACTIONS (11)
  - Rectal haemorrhage [Recovered/Resolved]
  - Night sweats [Unknown]
  - Blood pressure abnormal [Unknown]
  - Electrolyte imbalance [Unknown]
  - Psoriasis [Recovered/Resolved]
  - Hypotension [Recovered/Resolved]
  - Dizziness [Unknown]
  - Palpitations [Recovered/Resolved]
  - Diarrhoea [Recovered/Resolved]
  - Tinnitus [Recovered/Resolved]
  - Rash [Recovered/Resolved]
